FAERS Safety Report 4678181-4 (Version None)
Quarter: 2005Q2

REPORT INFORMATION
  Report Type: 
  Country: None (occurrence: None)
  Receive Date: 20050601
  Receipt Date: 20050223
  Transmission Date: 20051028
  Serious: Yes (Other)
  Sender: FDA-Public Use
  Company Number: PHBS2005BE02990

PATIENT
  Age: 72 Year
  Sex: Female

DRUGS (19)
  1. AREDIA [Suspect]
     Indication: NON-HODGKIN'S LYMPHOMA
     Dosage: UNK, UNK
     Route: 042
     Dates: start: 19990101, end: 20020901
  2. AREDIA [Suspect]
     Dosage: UNK, UNK
     Route: 042
     Dates: start: 20031001, end: 20041001
  3. CYCLOPHOSPHAMIDE W/VINCRISTINE/PREDNISONE [Concomitant]
     Dosage: 3 CYCLES OF CVP
     Route: 065
     Dates: start: 19990517, end: 19990628
  4. ZOMETA [Suspect]
     Indication: NON-HODGKIN'S LYMPHOMA
     Route: 042
     Dates: start: 20021001, end: 20030901
  5. ZOMETA [Suspect]
     Route: 042
     Dates: start: 20041101, end: 20050201
  6. FOLIC ACID [Concomitant]
     Route: 065
  7. L-THYROXINE [Concomitant]
     Route: 065
  8. ALDACTAZIDE [Concomitant]
     Route: 065
  9. EMCONCOR [Concomitant]
     Route: 065
  10. ZANTAC [Concomitant]
     Route: 065
  11. SERETIDE [Concomitant]
     Route: 065
  12. DUOVENT [Concomitant]
     Route: 065
  13. STILNOCT [Concomitant]
     Route: 065
  14. CYCLOPHOSPHAMIDE [Concomitant]
     Dosage: 3 CYCLES OF CP
     Route: 065
     Dates: start: 19990823, end: 19991108
  15. PREDNISOLONE [Concomitant]
     Dosage: 3 CYCLES OF CP
     Route: 065
     Dates: start: 19990823, end: 19991108
  16. CHOP [Concomitant]
     Dosage: 6 REGIMES OF CHOP + MABTHERA
     Route: 065
     Dates: start: 20000323, end: 20000608
  17. MABTHERA [Concomitant]
     Dosage: 6 REGIMES OF CHOP + MABTHERA
     Route: 065
     Dates: start: 20000323, end: 20000608
  18. CHOP [Concomitant]
     Route: 065
     Dates: start: 20000629, end: 20000724
  19. MABTHERA [Concomitant]
     Route: 065
     Dates: start: 20040501

REACTIONS (6)
  - ASEPTIC NECROSIS BONE [None]
  - MALIGNANT NEOPLASM PROGRESSION [None]
  - MUCOSAL EROSION [None]
  - OSTEONECROSIS [None]
  - TOOTH EXTRACTION [None]
  - WOUND DEBRIDEMENT [None]
